FAERS Safety Report 6314005-7 (Version None)
Quarter: 2009Q3

REPORT INFORMATION
  Report Type: 
  Country: None (occurrence: None)
  Receive Date: 20090818
  Receipt Date: 20090811
  Transmission Date: 20100115
  Serious: Yes (Other)
  Sender: FDA-Public Use
  Company Number: PHHY2009CN28979

PATIENT
  Age: 10 Year
  Sex: Female

DRUGS (3)
  1. VOLTAREN [Suspect]
     Indication: RHEUMATOID ARTHRITIS
     Dosage: 25 MG, BID
     Route: 048
     Dates: start: 20090501, end: 20090709
  2. NAPROXEN [Concomitant]
  3. SAIP [Concomitant]

REACTIONS (1)
  - OSTEONECROSIS [None]
